FAERS Safety Report 6584672-1 (Version None)
Quarter: 2010Q1

REPORT INFORMATION
  Report Type: 
  Country: None (occurrence: None)
  Receive Date: 20100204
  Receipt Date: 20100126
  Transmission Date: 20100710
  Serious: Yes (Hospitalization, Other)
  Sender: FDA-Public Use
  Company Number: 2008-187499-NL

PATIENT
  Age: 23 Year
  Sex: Female
  Weight: 86.1834 kg

DRUGS (3)
  1. NUVARING [Suspect]
     Indication: CONTRACEPTION
     Dosage: 1 DF;
     Dates: start: 20040101, end: 20050601
  2. PRILOSEC [Concomitant]
  3. DOXYCYCLINE [Concomitant]

REACTIONS (18)
  - ABORTION SPONTANEOUS [None]
  - ANKLE FRACTURE [None]
  - CHEST PAIN [None]
  - DEEP VEIN THROMBOSIS [None]
  - DRUG EXPOSURE DURING PREGNANCY [None]
  - FURUNCLE [None]
  - GAIT DISTURBANCE [None]
  - HOMANS' SIGN [None]
  - INJURY [None]
  - JOINT STIFFNESS [None]
  - JOINT SWELLING [None]
  - NAUSEA [None]
  - OSTEOMALACIA [None]
  - PLEURITIC PAIN [None]
  - PNEUMONIA [None]
  - PREGNANCY [None]
  - TENDON RUPTURE [None]
  - VOMITING [None]
